FAERS Safety Report 9967306 (Version 2)
Quarter: 2014Q1

REPORT INFORMATION
  Report Type: Report from Study
  Country: US (occurrence: US)
  Receive Date: 20140305
  Receipt Date: 20140305
  Transmission Date: 20141002
  Serious: Yes (Hospitalization)
  Sender: FDA-Public Use
  Company Number: US-ABBVIE-13P-163-1137192-00

PATIENT
  Age: 23 Year
  Sex: Female
  Weight: 47.22 kg

DRUGS (4)
  1. HUMIRA [Suspect]
     Indication: CROHN^S DISEASE
     Dates: start: 201005, end: 201005
  2. HUMIRA [Suspect]
     Dates: start: 2010
  3. HUMIRA [Suspect]
     Dates: start: 2010, end: 201208
  4. HUMIRA [Suspect]
     Dates: start: 201308, end: 201308

REACTIONS (2)
  - Crohn^s disease [Unknown]
  - Gastrointestinal infection [Not Recovered/Not Resolved]
